FAERS Safety Report 8769849 (Version 2)
Quarter: 2012Q4

REPORT INFORMATION
  Report Type: 
  Country: US (occurrence: US)
  Receive Date: 20120905
  Receipt Date: 20121113
  Transmission Date: 20130627
  Serious: No
  Sender: FDA-Public Use
  Company Number: US-009507513-1208USA005611

PATIENT
  Age: 22 Year
  Sex: Female

DRUGS (1)
  1. IMPLANON [Suspect]
     Indication: CONTRACEPTION
     Dosage: 3 year implant
     Route: 059
     Dates: start: 201003, end: 20120606

REACTIONS (3)
  - Headache [Unknown]
  - Weight increased [Unknown]
  - Device breakage [Unknown]
